FAERS Safety Report 26084379 (Version 1)
Quarter: 2025Q4

REPORT INFORMATION
  Report Type: Spontaneous
  Country: US (occurrence: US)
  Receive Date: 20251124
  Receipt Date: 20251124
  Transmission Date: 20260118
  Serious: No
  Sender: MERZ
  Company Number: US-Merz Pharmaceuticals GmbH-2025110000070

PATIENT

DRUGS (5)
  1. XEOMIN [Suspect]
     Active Substance: INCOBOTULINUMTOXINA
     Indication: Skin cosmetic procedure
     Dosage: 64 INTERNATIONAL UNIT
  2. XEOMIN [Suspect]
     Active Substance: INCOBOTULINUMTOXINA
     Indication: Skin wrinkling
  3. XEOMIN [Suspect]
     Active Substance: INCOBOTULINUMTOXINA
     Indication: Skin wrinkling
  4. RADIESSE [Concomitant]
     Active Substance: TRIBASIC CALCIUM PHOSPHATE
     Indication: Skin cosmetic procedure
  5. RADIESSE [Concomitant]
     Active Substance: TRIBASIC CALCIUM PHOSPHATE
     Indication: Skin cosmetic procedure

REACTIONS (1)
  - Injection site swelling [Unknown]
